FAERS Safety Report 16276122 (Version 1)
Quarter: 2019Q2

REPORT INFORMATION
  Report Type: Spontaneous
  Country: US (occurrence: US)
  Receive Date: 20190401
  Receipt Date: 20190401
  Transmission Date: 20190711
  Serious: Yes (Life-Threatening, Other)
  Sender: FDA-Public Use
  Company Number: None

PATIENT
  Age: 64 Year
  Sex: Female
  Weight: 68.04 kg

DRUGS (2)
  1. SPIRONOLACTONE. [Suspect]
     Active Substance: SPIRONOLACTONE
     Indication: HEPATIC ENZYME INCREASED
  2. SPIRONOLACTONE. [Suspect]
     Active Substance: SPIRONOLACTONE
     Indication: HIRSUTISM
     Dosage: ?          OTHER FREQUENCY:2 AM, 1 AT PM;?
     Route: 048
     Dates: start: 1999

REACTIONS (8)
  - Product substitution issue [None]
  - Nausea [None]
  - Vomiting [None]
  - Dizziness [None]
  - Diarrhoea [None]
  - Dry mouth [None]
  - Gastrooesophageal reflux disease [None]
  - Breast pain [None]
